FAERS Safety Report 7023323-9 (Version None)
Quarter: 2010Q3

REPORT INFORMATION
  Report Type: 
  Country: None (occurrence: None)
  Receive Date: 20100930
  Receipt Date: 20100816
  Transmission Date: 20110219
  Serious: Yes (Other)
  Sender: FDA-Public Use
  Company Number: US-BAXTER-2009BH017010

PATIENT
  Age: 49 Year
  Sex: Female
  Weight: 58 kg

DRUGS (14)
  1. HEPARIN SODIUM INJECTION [Suspect]
     Indication: INTRACRANIAL ANEURYSM
     Route: 065
  2. HEPARIN SODIUM INJECTION [Suspect]
     Route: 065
     Dates: start: 20080129, end: 20080130
  3. HEPARIN SODIUM INJECTION [Suspect]
     Route: 065
     Dates: start: 20080202, end: 20080208
  4. ACETAZOLAMIDE [Concomitant]
     Indication: PRODUCT USED FOR UNKNOWN INDICATION
     Route: 065
  5. ASPIRIN [Concomitant]
     Indication: PRODUCT USED FOR UNKNOWN INDICATION
     Route: 065
  6. VITAMIN D3 [Concomitant]
     Indication: PRODUCT USED FOR UNKNOWN INDICATION
     Route: 048
  7. COLACE [Concomitant]
     Indication: PRODUCT USED FOR UNKNOWN INDICATION
     Route: 065
  8. FIORICET [Concomitant]
     Indication: PRODUCT USED FOR UNKNOWN INDICATION
     Route: 048
  9. FOSAMAX [Concomitant]
     Indication: PRODUCT USED FOR UNKNOWN INDICATION
     Route: 065
  10. LEVETIRACETAM [Concomitant]
     Indication: PRODUCT USED FOR UNKNOWN INDICATION
     Route: 065
  11. SULFAMETHOXAZOLE [Concomitant]
     Indication: PRODUCT USED FOR UNKNOWN INDICATION
     Route: 048
  12. DIAMOX SODIUM [Concomitant]
     Indication: PRODUCT USED FOR UNKNOWN INDICATION
     Route: 048
  13. KEPPRA [Concomitant]
     Indication: PRODUCT USED FOR UNKNOWN INDICATION
     Route: 048
  14. ASPIRIN [Concomitant]
     Indication: PRODUCT USED FOR UNKNOWN INDICATION
     Route: 065

REACTIONS (8)
  - ABDOMINAL PAIN [None]
  - ASTHENIA [None]
  - DECREASED APPETITE [None]
  - HYPOTENSION [None]
  - LETHARGY [None]
  - MENTAL STATUS CHANGES [None]
  - NAUSEA [None]
  - SUBARACHNOID HAEMORRHAGE [None]
